FAERS Safety Report 8045444-4 (Version None)
Quarter: 2012Q1

REPORT INFORMATION
  Report Type: 
  Country: None (occurrence: None)
  Receive Date: 20120113
  Receipt Date: 20120104
  Transmission Date: 20120608
  Serious: Yes (Hospitalization)
  Sender: FDA-Public Use
  Company Number: IL-ALEXION-A201200044

PATIENT
  Sex: Female

DRUGS (2)
  1. PIPERACILLIN AND TAZOBACTAM [Concomitant]
     Indication: ANTIBIOTIC THERAPY
     Dosage: UNK
     Route: 042
  2. SOLIRIS [Suspect]
     Indication: HAEMOLYTIC URAEMIC SYNDROME
     Dosage: 600 MG, QW
     Route: 042
     Dates: start: 20111229

REACTIONS (2)
  - CEREBRAL HAEMORRHAGE [None]
  - DRUG INEFFECTIVE [None]
